FAERS Safety Report 15836306 (Version 1)
Quarter: 2019Q1

REPORT INFORMATION
  Report Type: Spontaneous
  Country: US (occurrence: None)
  Receive Date: 20190111
  Receipt Date: 20190111
  Transmission Date: 20190417
  Serious: Yes (Other)
  Sender: FDA-Public Use
  Company Number: T0001010719

PATIENT
  Sex: Female

DRUGS (1)
  1. THE INDIGO CREAM [Suspect]
     Active Substance: OATMEAL
     Dosage: 2% COLLOIDAL OATMEAL 2 TIMES 060 - TOPICAL
     Route: 061

REACTIONS (2)
  - Hypersensitivity [None]
  - Rash erythematous [None]

NARRATIVE: CASE EVENT DATE: 20181224
